FAERS Safety Report 7174504-5 (Version None)
Quarter: 2010Q4

REPORT INFORMATION
  Report Type: 
  Country: None (occurrence: None)
  Receive Date: 20101219
  Receipt Date: 20100330
  Transmission Date: 20110411
  Serious: No
  Sender: FDA-Public Use
  Company Number: US-AMGEN-QUU398672

PATIENT

DRUGS (4)
  1. ENBREL [Suspect]
     Indication: RHEUMATOID ARTHRITIS
     Dosage: 50 MG, UNK
     Route: 058
     Dates: start: 20050428
  2. METHOTREXATE [Concomitant]
     Dosage: 2.5 MG, QWK
  3. CELEXA [Concomitant]
  4. FOLIC ACID [Concomitant]

REACTIONS (2)
  - ARTHRALGIA [None]
  - GAIT DISTURBANCE [None]
